FAERS Safety Report 13538870 (Version 1)
Quarter: 2017Q2

REPORT INFORMATION
  Report Type: Spontaneous
  Country: US (occurrence: US)
  Receive Date: 20170511
  Receipt Date: 20170511
  Transmission Date: 20170830
  Serious: Yes (Other)
  Sender: FDA-Public Use
  Company Number: None

PATIENT
  Age: 40 Year
  Sex: Male
  Weight: 99 kg

DRUGS (2)
  1. CIPROFLOXACIN. [Suspect]
     Active Substance: CIPROFLOXACIN
     Indication: SUBCUTANEOUS ABSCESS
     Route: 048
     Dates: start: 20170406, end: 20170417
  2. ANTIBIOTICS [Concomitant]
     Active Substance: UNSPECIFIED INGREDIENT

REACTIONS (5)
  - Ocular icterus [None]
  - Liver function test increased [None]
  - Jaundice [None]
  - Treatment failure [None]
  - Blood bilirubin increased [None]

NARRATIVE: CASE EVENT DATE: 20170510
